FAERS Safety Report 12803330 (Version 2)
Quarter: 2016Q4

REPORT INFORMATION
  Report Type: Report from Study
  Country: US (occurrence: US)
  Receive Date: 20161003
  Receipt Date: 20161007
  Transmission Date: 20170207
  Serious: Yes (Hospitalization, Other)
  Sender: FDA-Public Use
  Company Number: US-JNJFOC-20160930654

PATIENT
  Age: 59 Year
  Sex: Male

DRUGS (15)
  1. AMLODIPINE [Suspect]
     Active Substance: AMLODIPINE BESYLATE
     Indication: PRODUCT USED FOR UNKNOWN INDICATION
     Route: 065
  2. ALUMINIUM HYDROXIDE-MAGNESIUM CARBONATE GEL [Concomitant]
  3. TYLENOL PM [Concomitant]
     Active Substance: ACETAMINOPHEN\DIPHENHYDRAMINE
  4. VALSARTAN. [Concomitant]
     Active Substance: VALSARTAN
  5. KLONOPIN [Concomitant]
     Active Substance: CLONAZEPAM
  6. ALLOPURINOL. [Concomitant]
     Active Substance: ALLOPURINOL
  7. VALTREX [Concomitant]
     Active Substance: VALACYCLOVIR HYDROCHLORIDE
  8. ZYRTEC [Concomitant]
     Active Substance: CETIRIZINE HYDROCHLORIDE
  9. JANUMET [Concomitant]
     Active Substance: METFORMIN HYDROCHLORIDE\SITAGLIPTIN PHOSPHATE
  10. IMBRUVICA [Suspect]
     Active Substance: IBRUTINIB
     Indication: CHRONIC LYMPHOCYTIC LEUKAEMIA
     Route: 048
     Dates: start: 20150128
  11. FENOFIBRATE. [Concomitant]
     Active Substance: FENOFIBRATE
  12. PROZAC [Concomitant]
     Active Substance: FLUOXETINE HYDROCHLORIDE
  13. LEVOTHYROXINE. [Concomitant]
     Active Substance: LEVOTHYROXINE
  14. AMIODARONE [Concomitant]
     Active Substance: AMIODARONE
  15. ASPIRIN. [Concomitant]
     Active Substance: ASPIRIN

REACTIONS (8)
  - Weight decreased [Unknown]
  - Disease progression [Unknown]
  - Malaise [Unknown]
  - Drug resistance [Unknown]
  - Renal failure [Unknown]
  - Cataract operation [Unknown]
  - Dehydration [Unknown]
  - Blood pressure abnormal [Unknown]

NARRATIVE: CASE EVENT DATE: 201607
